FAERS Safety Report 24707436 (Version 1)
Quarter: 2024Q4

REPORT INFORMATION
  Report Type: Spontaneous
  Country: GB (occurrence: GB)
  Receive Date: 20241206
  Receipt Date: 20241206
  Transmission Date: 20250114
  Serious: Yes (Hospitalization, Other)
  Sender: PFIZER
  Company Number: GB-PFIZER INC-PV202400159230

PATIENT
  Age: 65 Year
  Sex: Female

DRUGS (1)
  1. XELJANZ [Suspect]
     Active Substance: TOFACITINIB CITRATE
     Indication: Rheumatoid arthritis
     Dosage: 5 MG
     Dates: start: 201906

REACTIONS (3)
  - Cholecystectomy [Unknown]
  - Diabetic ketoacidosis [Unknown]
  - Hepatitis E [Unknown]

NARRATIVE: CASE EVENT DATE: 20240801
